FAERS Safety Report 10255407 (Version 1)
Quarter: 2014Q2

REPORT INFORMATION
  Report Type: Spontaneous
  Country: US (occurrence: US)
  Receive Date: 20140624
  Receipt Date: 20140624
  Transmission Date: 20141212
  Serious: No
  Sender: FDA-Public Use
  Company Number: US-PFIZER INC-2014172116

PATIENT
  Age: 88 Year
  Sex: Female
  Weight: 54.42 kg

DRUGS (5)
  1. XELJANZ [Suspect]
     Indication: RHEUMATOID ARTHRITIS
     Dosage: 5 MG, 2X/DAY
     Route: 048
     Dates: start: 2014, end: 201406
  2. FOLIC ACID [Concomitant]
     Dosage: 1 MG, DAILY
  3. METHOTREXATE [Concomitant]
     Dosage: UNK
     Route: 048
  4. PREDNISONE [Concomitant]
     Dosage: 10 MG, DAILY
  5. WARFARIN [Concomitant]
     Dosage: 3 MG, DAILY

REACTIONS (2)
  - Dizziness [Not Recovered/Not Resolved]
  - Headache [Not Recovered/Not Resolved]
